FAERS Safety Report 6057654-6 (Version None)
Quarter: 2009Q1

REPORT INFORMATION
  Report Type: 
  Country: None (occurrence: None)
  Receive Date: 20090121
  Receipt Date: 20080313
  Transmission Date: 20090719
  Serious: Yes (Other)
  Sender: FDA-Public Use
  Company Number: HQWYE196516JUL04

PATIENT
  Age: 58 Year
  Sex: Female
  Weight: 90.8 kg

DRUGS (6)
  1. PREMPRO [Suspect]
     Indication: HORMONE REPLACEMENT THERAPY
     Dates: start: 19960101, end: 20000101
  2. PREMARIN [Suspect]
     Dates: start: 19930101
  3. PROVERA [Suspect]
     Dates: start: 19960101
  4. ATIVAN [Concomitant]
  5. FLEXERIL [Concomitant]
  6. DIOVAN [Concomitant]

REACTIONS (1)
  - BREAST CANCER [None]
